FAERS Safety Report 24300962 (Version 1)
Quarter: 2024Q3

REPORT INFORMATION
  Report Type: Spontaneous
  Country: IR (occurrence: IR)
  Receive Date: 20240910
  Receipt Date: 20240910
  Transmission Date: 20241017
  Serious: Yes (Hospitalization)
  Sender: CHEPLAPHARM
  Company Number: None

PATIENT
  Age: 21 Year
  Sex: Male

DRUGS (4)
  1. CAPECITABINE [Suspect]
     Active Substance: CAPECITABINE
     Indication: Adenocarcinoma of colon
     Dosage: 1000 MG/M2 ORALLY TWICE DAILY ON DAYS 1?14 ADMINISTERED OVER EIGHT SESSIONS AT 21-DAY INTERVALS
     Route: 048
     Dates: start: 202303, end: 2023
  2. CAPECITABINE [Suspect]
     Active Substance: CAPECITABINE
     Indication: DNA mismatch repair protein gene mutation
     Dosage: 1000 MG/M2 ORALLY TWICE DAILY ON DAYS 1?14 ADMINISTERED OVER EIGHT SESSIONS AT 21-DAY INTERVALS
     Route: 048
     Dates: start: 202303, end: 2023
  3. OXALIPLATIN [Suspect]
     Active Substance: OXALIPLATIN
     Indication: DNA mismatch repair protein gene mutation
     Dosage: ON DAY 1 ADMINISTERED OVER EIGHT SESSIONS AT 21-DAY INTERVALS
     Route: 042
     Dates: start: 202303, end: 2023
  4. OXALIPLATIN [Suspect]
     Active Substance: OXALIPLATIN
     Indication: Adenocarcinoma of colon
     Dosage: ON DAY 1 ADMINISTERED OVER EIGHT SESSIONS AT 21-DAY INTERVALS
     Route: 042
     Dates: start: 202303, end: 2023

REACTIONS (3)
  - Myocardial injury [Recovering/Resolving]
  - Cardiac failure [Recovering/Resolving]
  - Cardiac haemangioma benign [Recovering/Resolving]

NARRATIVE: CASE EVENT DATE: 20231101
